FAERS Safety Report 8454225-9 (Version None)
Quarter: 2012Q2

REPORT INFORMATION
  Report Type: 
  Country: None (occurrence: None)
  Receive Date: 20120620
  Receipt Date: 20120320
  Transmission Date: 20120825
  Serious: No
  Sender: FDA-Public Use
  Company Number: US-TEVA-328635USA

PATIENT
  Sex: Female
  Weight: 63.56 kg

DRUGS (7)
  1. CLONIDINE [Concomitant]
     Indication: HYPERTENSION
     Dosage: 0.1MG BID
     Route: 048
  2. ENALAPRIL MALEATE [Concomitant]
     Indication: HYPERTENSION
     Dosage: 20 MG DAILY
     Route: 048
  3. FUROSEMIDE [Concomitant]
     Indication: HYPERTENSION
     Dosage: 40 MG BID
     Route: 048
  4. ACTIQ [Suspect]
     Indication: MIGRAINE
     Dosage: 400 MCG DAILY
  5. VICODIN [Concomitant]
     Indication: MIGRAINE
     Dosage: 10 MG BID
     Route: 048
     Dates: end: 20060101
  6. MORPHINE [Concomitant]
     Indication: MIGRAINE
     Dosage: 40 MILLIGRAM;
     Route: 048
  7. CARBETOLOL [Concomitant]
     Indication: HYPERTENSION
     Dosage: 6.25MG BID
     Route: 048

REACTIONS (4)
  - BLOOD PRESSURE INCREASED [None]
  - CATARACT [None]
  - OFF LABEL USE [None]
  - DRUG PRESCRIBING ERROR [None]
